FAERS Safety Report 4799740-4 (Version None)
Quarter: 2005Q4

REPORT INFORMATION
  Report Type: 
  Country: None (occurrence: None)
  Receive Date: 20051011
  Receipt Date: 20051011
  Transmission Date: 20060501
  Serious: No
  Sender: FDA-Public Use
  Company Number: None

PATIENT
  Sex: Female
  Weight: 77.1115 kg

DRUGS (4)
  1. VIOXX [Suspect]
     Indication: ARTHRITIS
  2. BEXTRA [Suspect]
  3. VIOXX [Concomitant]
  4. BEXTRA [Concomitant]

REACTIONS (1)
  - MYOCARDIAL INFARCTION [None]
